FAERS Safety Report 5964729-6 (Version None)
Quarter: 2008Q4

REPORT INFORMATION
  Report Type: 
  Country: None (occurrence: None)
  Receive Date: 20081125
  Receipt Date: 20080221
  Transmission Date: 20090506
  Serious: No
  Sender: FDA-Public Use
  Company Number: US-AMGEN-US266407

PATIENT
  Sex: Female
  Weight: 32.2 kg

DRUGS (2)
  1. ENBREL [Suspect]
     Indication: JUVENILE ARTHRITIS
     Route: 058
     Dates: start: 20050821, end: 20080522
  2. METHOTREXATE [Concomitant]
     Route: 030
     Dates: start: 20010101

REACTIONS (2)
  - INJECTION SITE PAIN [None]
  - IRITIS [None]
